FAERS Safety Report 8227711-4 (Version None)
Quarter: 2012Q1

REPORT INFORMATION
  Report Type: 
  Country: None (occurrence: None)
  Receive Date: 20120322
  Receipt Date: 20120320
  Transmission Date: 20120608
  Serious: Yes (Hospitalization)
  Sender: FDA-Public Use
  Company Number: US-B.I. PHARMACEUTICALS,INC./RIDGEFIELD-2012-BP-05224BP

PATIENT
  Sex: Male

DRUGS (3)
  1. PRADAXA [Suspect]
     Indication: ATRIAL FIBRILLATION
     Dosage: 300 MG
     Route: 048
     Dates: start: 20120220
  2. MEDICATION NOT FURTHER SPECIFIED [Concomitant]
  3. VESICARE [Concomitant]
     Indication: HYPERTONIC BLADDER
     Dosage: 5 MG
     Route: 048

REACTIONS (2)
  - BACK PAIN [None]
  - NERVE COMPRESSION [None]
